FAERS Safety Report 8273423-0 (Version None)
Quarter: 2012Q2

REPORT INFORMATION
  Report Type: 
  Country: None (occurrence: None)
  Receive Date: 20120411
  Receipt Date: 20120409
  Transmission Date: 20120825
  Serious: No
  Sender: FDA-Public Use
  Company Number: US-PFIZER INC-2012041402

PATIENT
  Sex: Female
  Weight: 58.957 kg

DRUGS (2)
  1. IBUPROFEN (ADVIL) [Suspect]
     Indication: OSTEOARTHRITIS
     Dosage: 400 MG, 2X/DAY
     Route: 048
     Dates: start: 20120210, end: 20120215
  2. IBUPROFEN (ADVIL) [Suspect]
     Indication: ARTHRITIS

REACTIONS (3)
  - DYSGEUSIA [None]
  - ABDOMINAL PAIN UPPER [None]
  - SALIVARY HYPERSECRETION [None]
